FAERS Safety Report 7338459-2 (Version None)
Quarter: 2011Q1

REPORT INFORMATION
  Report Type: 
  Country: None (occurrence: None)
  Receive Date: 20110308
  Receipt Date: 20110223
  Transmission Date: 20110831
  Serious: Yes (Hospitalization)
  Sender: FDA-Public Use
  Company Number: FR-ELI_LILLY_AND_COMPANY-FR201103001276

PATIENT
  Sex: Male

DRUGS (10)
  1. EUPRESSYL [Concomitant]
     Route: 048
  2. CYMBALTA [Suspect]
     Dates: start: 20080929
  3. BYETTA [Concomitant]
     Indication: DIABETES MELLITUS
     Dosage: UNK, 2/D
     Route: 058
     Dates: start: 20080915
  4. TRIATEC /FRA/ [Concomitant]
     Route: 048
  5. ESIDRIX [Concomitant]
     Dosage: 25 MG, DAILY (1/D)
     Route: 048
     Dates: start: 20080918, end: 20080927
  6. BURINEX [Concomitant]
     Dosage: UNK, UNK
     Route: 048
     Dates: start: 20080917
  7. CYMBALTA [Suspect]
     Indication: DIABETIC NEUROPATHY
     Dosage: 60 MG, DAILY (1/D)
     Route: 048
     Dates: start: 20080915, end: 20080925
  8. AMLOR [Concomitant]
     Route: 048
     Dates: start: 20080901
  9. GLUCOPHAGE [Concomitant]
     Route: 048
  10. ZOCOR [Concomitant]
     Route: 048

REACTIONS (3)
  - HYPOCHLORAEMIA [None]
  - HYPONATRAEMIA [None]
  - FALL [None]
